FAERS Safety Report 4650872-0 (Version None)
Quarter: 2005Q2

REPORT INFORMATION
  Report Type: 
  Country: None (occurrence: None)
  Receive Date: 20050503
  Receipt Date: 20050419
  Transmission Date: 20051028
  Serious: Yes (Hospitalization, Other)
  Sender: FDA-Public Use
  Company Number: GB-JNJFOC-20050404386

PATIENT
  Sex: Male
  Weight: 82 kg

DRUGS (10)
  1. REMICADE [Suspect]
     Indication: RHEUMATOID ARTHRITIS
     Route: 042
  2. METHOTREXATE [Concomitant]
  3. FOLIC ACID [Concomitant]
  4. DIHYDROCODEINE BITARTRATE INJ [Concomitant]
  5. PREDNISOLONE [Concomitant]
  6. PRAVASTATIN [Concomitant]
  7. TEMAZEPAM [Concomitant]
  8. SILDENAFIL [Concomitant]
  9. CD3F [Concomitant]
  10. CD3F [Concomitant]

REACTIONS (2)
  - ARTHRALGIA [None]
  - JOINT SURGERY [None]
